FAERS Safety Report 4933531-6 (Version None)
Quarter: 2006Q1

REPORT INFORMATION
  Report Type: 
  Country: None (occurrence: None)
  Receive Date: 20060306
  Receipt Date: 20060214
  Transmission Date: 20060701
  Serious: Yes (Death, Other)
  Sender: FDA-Public Use
  Company Number: JP-SANOFI-SYNTHELABO-F01200600421

PATIENT
  Sex: Male

DRUGS (5)
  1. OXALIPLATIN [Suspect]
     Indication: COLON CANCER
     Route: 041
     Dates: start: 20051126, end: 20051126
  2. FLUOROURACIL [Suspect]
     Dosage: FLUOROURACIL (760 MG/BODY=413.0 MG/M2 IN BOLUS THEN 1140 MG/BODY=619.6 MG/M2 AS CONTINUOUS INFUSION
     Route: 042
     Dates: start: 20051126, end: 20051127
  3. CALCIUM LEVOFOLINATE [Suspect]
     Route: 042
     Dates: start: 20051126, end: 20051127
  4. SULPERAZON [Concomitant]
     Route: 041
     Dates: start: 20060128, end: 20060129
  5. MAXIPIME [Concomitant]
     Route: 041
     Dates: start: 20060130, end: 20060131

REACTIONS (6)
  - ALANINE AMINOTRANSFERASE INCREASED [None]
  - ASPARTATE AMINOTRANSFERASE INCREASED [None]
  - HAEMOGLOBIN DECREASED [None]
  - LEUKOPENIA [None]
  - NEUTROPENIA [None]
  - THROMBOCYTOPENIA [None]
